FAERS Safety Report 4430776-9 (Version None)
Quarter: 2004Q3

REPORT INFORMATION
  Report Type: 
  Country: None (occurrence: None)
  Receive Date: 20040818
  Receipt Date: 20040802
  Transmission Date: 20050211
  Serious: Yes (Death, Other)
  Sender: FDA-Public Use
  Company Number: 2004UW15834

PATIENT
  Age: 49 Year
  Sex: Female

DRUGS (1)
  1. IRESSA [Suspect]
     Indication: NEUROENDOCRINE CARCINOMA
     Dosage: 250 MG PO
     Route: 048

REACTIONS (4)
  - MALIGNANT NEOPLASM PROGRESSION [None]
  - MEDICATION ERROR [None]
  - NEUROENDOCRINE CARCINOMA [None]
  - SMALL CELL CARCINOMA [None]
